FAERS Safety Report 22596341 (Version 1)
Quarter: 2023Q2

REPORT INFORMATION
  Report Type: Spontaneous
  Country: US (occurrence: US)
  Receive Date: 20230613
  Receipt Date: 20230613
  Transmission Date: 20230722
  Serious: Yes (Hospitalization)
  Sender: FDA-Public Use
  Company Number: US-AMERICAN REGENT INC-2023001403

PATIENT
  Age: 6 Decade
  Sex: Female

DRUGS (6)
  1. GEMCITABINE [Suspect]
     Active Substance: GEMCITABINE
     Indication: HER2 positive breast cancer
     Dosage: 1000 MG/M2 ON DAYS 1 AND 8 OF 21 DAY CYCLE FOR 2 CYCLES
     Route: 042
  2. GEMCITABINE [Suspect]
     Active Substance: GEMCITABINE
     Indication: Breast cancer metastatic
  3. MARGETUXIMAB [Concomitant]
     Active Substance: MARGETUXIMAB
     Indication: HER2 positive breast cancer
     Dosage: 15 MILLIGRAM PER KILOGRAM ON DAY 1
     Route: 042
  4. MARGETUXIMAB [Concomitant]
     Active Substance: MARGETUXIMAB
     Indication: Breast cancer metastatic
  5. TRASTUZUMAB [Concomitant]
     Active Substance: TRASTUZUMAB
     Indication: HER2 positive breast cancer
     Dosage: UNK, CYCLE 2 DAY 1
     Route: 065
  6. TRASTUZUMAB [Concomitant]
     Active Substance: TRASTUZUMAB
     Indication: Breast cancer metastatic

REACTIONS (4)
  - Peripheral ischaemia [Recovered/Resolved]
  - Dry gangrene [Recovered/Resolved]
  - Product use issue [Unknown]
  - Product administration error [Unknown]
